FAERS Safety Report 24713314 (Version 1)
Quarter: 2024Q4

REPORT INFORMATION
  Report Type: Spontaneous
  Country: US (occurrence: US)
  Receive Date: 20241209
  Receipt Date: 20241209
  Transmission Date: 20250115
  Serious: No
  Sender: REGENERON
  Company Number: US-REGENERON PHARMACEUTICALS, INC.-2024-025197

PATIENT
  Sex: Male

DRUGS (1)
  1. EYLEA [Suspect]
     Active Substance: AFLIBERCEPT
     Indication: Diabetic retinopathy
     Dosage: 2 MG, EVERY 3 MONTHS, (FORMULATION: UNKNOWN)

REACTIONS (3)
  - Eye pain [Recovering/Resolving]
  - Ocular hyperaemia [Unknown]
  - Product administration error [Unknown]

NARRATIVE: CASE EVENT DATE: 20231101
